FAERS Safety Report 7058463-1 (Version None)
Quarter: 2010Q4

REPORT INFORMATION
  Report Type: 
  Country: None (occurrence: None)
  Receive Date: 20101022
  Receipt Date: 20101012
  Transmission Date: 20110411
  Serious: Yes (Hospitalization)
  Sender: FDA-Public Use
  Company Number: GXKR2010DK11399

PATIENT
  Sex: Male
  Weight: 93 kg

DRUGS (1)
  1. CORODIL (NGX) [Suspect]
     Indication: HYPERTENSION
     Dosage: 5 MG, QD
     Route: 048
     Dates: start: 20100819, end: 20101004

REACTIONS (2)
  - RETINAL DETACHMENT [None]
  - RETINAL OEDEMA [None]
